FAERS Safety Report 14430277 (Version 2)
Quarter: 2018Q1

REPORT INFORMATION
  Report Type: Spontaneous
  Country: ZA (occurrence: ZA)
  Receive Date: 20180123
  Receipt Date: 20180126
  Transmission Date: 20180509
  Serious: Yes (Death)
  Sender: FDA-Public Use
  Company Number: ZA-AMGEN-ZAFSP2018007984

PATIENT
  Age: 72 Year
  Sex: Female

DRUGS (1)
  1. ENBREL [Suspect]
     Active Substance: ETANERCEPT
     Indication: RHEUMATOID ARTHRITIS
     Dosage: 50 MG, WEEKLY
     Route: 058
     Dates: start: 20150713

REACTIONS (2)
  - Cardiac disorder [Fatal]
  - Anaemia [Fatal]

NARRATIVE: CASE EVENT DATE: 20180114
